FAERS Safety Report 6614221-0 (Version None)
Quarter: 2010Q1

REPORT INFORMATION
  Report Type: 
  Country: None (occurrence: None)
  Receive Date: 20100303
  Receipt Date: 20100303
  Transmission Date: 20100710
  Serious: No
  Sender: FDA-Public Use
  Company Number: None

PATIENT
  Sex: Female

DRUGS (4)
  1. ALPHAGAN [Suspect]
     Indication: GLAUCOMA
     Dosage: 1 DROP OS BID VIA EYEDROPPER
     Dates: start: 20030201, end: 20070301
  2. PILOPINE HS [Suspect]
     Indication: GLAUCOMA
     Dosage: 1 DROP OS QHS VIA EYEDROPPER
     Dates: start: 20070401, end: 20090801
  3. XALATAN [Concomitant]
  4. COSOPT [Concomitant]

REACTIONS (2)
  - DRUG HYPERSENSITIVITY [None]
  - DRUG INEFFECTIVE [None]
